FAERS Safety Report 7817045-1 (Version None)
Quarter: 2011Q4

REPORT INFORMATION
  Report Type: 
  Country: None (occurrence: None)
  Receive Date: 20111014
  Receipt Date: 20111014
  Transmission Date: 20120403
  Serious: Yes (Other)
  Sender: FDA-Public Use
  Company Number: None

PATIENT
  Age: 74 Year
  Sex: Male
  Weight: 220 kg

DRUGS (2)
  1. JANUVIA [Suspect]
     Indication: DIABETES MELLITUS
     Dosage: 1 A DAY
  2. PRANDIN [Suspect]
     Indication: DIABETES MELLITUS
     Dosage: 3X A DAY

REACTIONS (3)
  - RASH PRURITIC [None]
  - SKIN DISCOLOURATION [None]
  - NAIL DISCOLOURATION [None]
